FAERS Safety Report 7111399-X (Version None)
Quarter: 2010Q4

REPORT INFORMATION
  Report Type: 
  Country: None (occurrence: None)
  Receive Date: 20101118
  Receipt Date: 20100108
  Transmission Date: 20110411
  Serious: No
  Sender: FDA-Public Use
  Company Number: US-TEVA-220257USA

PATIENT
  Sex: Female

DRUGS (4)
  1. ALBUTEROL SULFATE AUTOHALER [Suspect]
     Indication: CHRONIC OBSTRUCTIVE PULMONARY DISEASE
     Route: 055
     Dates: start: 20090101
  2. ALBUTEROL SULFATE AUTOHALER [Suspect]
     Indication: ASTHMA
  3. IRBESARTAN [Concomitant]
     Indication: HYPERTENSION
     Route: 048
  4. GLIPIZIDE [Concomitant]
     Indication: DIABETES MELLITUS
     Route: 048

REACTIONS (1)
  - THROAT IRRITATION [None]
